FAERS Safety Report 9200065 (Version 6)
Quarter: 2015Q3

REPORT INFORMATION
  Report Type: Report from Study
  Country: CA (occurrence: CA)
  Receive Date: 20130329
  Receipt Date: 20150916
  Transmission Date: 20151125
  Serious: Yes (Other)
  Sender: FDA-Public Use
  Company Number: CA-ROCHE-1052550

PATIENT
  Age: 56 Year
  Sex: Female
  Weight: 80 kg

DRUGS (13)
  1. QUININE [Concomitant]
     Active Substance: QUININE
     Indication: MUSCLE RELAXANT THERAPY
  2. SYNTHROID [Concomitant]
     Active Substance: LEVOTHYROXINE SODIUM
  3. DURAGESIC (CANADA) [Concomitant]
     Route: 065
  4. PERCOCET [Concomitant]
     Active Substance: ACETAMINOPHEN\OXYCODONE HYDROCHLORIDE
  5. METHOTREXATE [Concomitant]
     Active Substance: METHOTREXATE
  6. SALBUTAMOL [Concomitant]
     Active Substance: ALBUTEROL
     Route: 065
  7. MYOCRISIN [Concomitant]
     Route: 065
  8. ESTROGEL [Concomitant]
     Active Substance: ESTRADIOL
  9. ACTEMRA [Suspect]
     Active Substance: TOCILIZUMAB
     Indication: RHEUMATOID ARTHRITIS
     Route: 042
     Dates: start: 20110111
  10. TEMAZEPAM. [Concomitant]
     Active Substance: TEMAZEPAM
  11. WELLBUTRIN [Concomitant]
     Active Substance: BUPROPION HYDROCHLORIDE
  12. ADVAIR HFA [Concomitant]
     Active Substance: FLUTICASONE PROPIONATE\SALMETEROL XINAFOATE
     Route: 065
  13. PENTAZOLE [Concomitant]
     Indication: GASTROOESOPHAGEAL REFLUX DISEASE

REACTIONS (9)
  - Tooth loss [Unknown]
  - Shoulder arthroplasty [Recovered/Resolved]
  - Shoulder operation [Unknown]
  - Wrist surgery [Recovered/Resolved]
  - Weight increased [Unknown]
  - Arthrodesis [Unknown]
  - Tooth disorder [Unknown]
  - Nasopharyngitis [Unknown]
  - Knee arthroplasty [Unknown]

NARRATIVE: CASE EVENT DATE: 20110727
